FAERS Safety Report 6266757-2 (Version None)
Quarter: 2009Q3

REPORT INFORMATION
  Report Type: 
  Country: None (occurrence: None)
  Receive Date: 20090714
  Receipt Date: 20070917
  Transmission Date: 20100115
  Serious: Yes (Other)
  Sender: FDA-Public Use
  Company Number: US-ASTRAZENECA-2006UW24668

PATIENT
  Age: 11342 Day
  Sex: Male
  Weight: 112.5 kg

DRUGS (77)
  1. SEROQUEL [Suspect]
     Indication: BIPOLAR DISORDER
     Dosage: 25MG-100 MG
     Route: 048
     Dates: start: 20021201
  2. SEROQUEL [Suspect]
     Indication: DEPRESSION
     Dosage: 25MG-100 MG
     Route: 048
     Dates: start: 20021201
  3. SEROQUEL [Suspect]
     Route: 048
  4. SEROQUEL [Suspect]
     Route: 048
  5. ZYPREXA [Concomitant]
  6. GEODON [Concomitant]
  7. RISPERDAL [Concomitant]
  8. HYDROCHLOROTHIAZIDE [Concomitant]
     Route: 048
  9. NORVASC [Concomitant]
     Dosage: 5-10 MG,DAILY
     Route: 048
  10. LIPITOR [Concomitant]
     Route: 048
  11. WELLBUTRIN XL [Concomitant]
     Dosage: 150-450 MG,DAILY
     Route: 048
  12. FLONASE [Concomitant]
     Dosage: 2 PUFFS
  13. GLUCOPHAGE [Concomitant]
     Route: 048
  14. ALBUTEROL [Concomitant]
     Dosage: 2 PUFFS, TWO TIMES A DAY
  15. ATENOLOL [Concomitant]
  16. CELEXA [Concomitant]
     Dosage: 30-40 MG,DAILY
     Route: 048
  17. ULTRAM [Concomitant]
     Route: 048
  18. LAMICTAL [Concomitant]
     Dosage: 25-300 MG,AT BED TIME
  19. LYRICA [Concomitant]
     Dosage: 50-150 MG
     Route: 048
  20. TOPAMAX [Concomitant]
     Dosage: 25-100 MG
  21. TIZANIDINE HYDROCHLORIDE [Concomitant]
     Route: 048
  22. PERCOCET [Concomitant]
     Indication: PAIN
     Dosage: 5-325 MG,AS NEEDED EVERY FOUR HOUR
     Route: 048
  23. LEVAQUIN [Concomitant]
     Route: 048
  24. DARVOCET [Concomitant]
     Dosage: 300 NG/ML
  25. FLEXERIL [Concomitant]
     Route: 048
  26. MOTRIN [Concomitant]
     Dosage: 600-800MG
     Route: 048
  27. DARVOCET-N 100 [Concomitant]
  28. BACLOFEN [Concomitant]
     Route: 048
  29. GLIMEPIRIDE [Concomitant]
     Route: 048
  30. ZOCOR [Concomitant]
     Route: 048
  31. PHENYTOIN [Concomitant]
  32. PHENOBARBITAL [Concomitant]
  33. CARBAMAZEPINE [Concomitant]
  34. VALPROIC ACID [Concomitant]
  35. TRAZODONE [Concomitant]
     Route: 048
  36. CIPROFLOXACIN [Concomitant]
  37. RELPAX [Concomitant]
  38. KETOROLAC TROMETHAMINE [Concomitant]
  39. ROZEREM [Concomitant]
     Route: 048
  40. PHENERGAN [Concomitant]
     Dosage: 6.25-12.5 MG
  41. VANCOMYCIN [Concomitant]
  42. KEFZOL [Concomitant]
     Dosage: 1 GM,VIAL
  43. PEPCID [Concomitant]
     Route: 048
  44. ZOFRAN [Concomitant]
  45. ABILIFY [Concomitant]
     Dosage: 5-10 MG
  46. RESTORIL [Concomitant]
  47. ALTACE [Concomitant]
  48. ADVAIR HFA [Concomitant]
     Dosage: 2 PUFFS,AS NEEDED ONE TIME A DAY
  49. DOCUSATE [Concomitant]
     Route: 048
  50. DEPAKOTE [Concomitant]
  51. DESIPRAMINE HCL [Concomitant]
  52. FLUOXETINE HCL [Concomitant]
  53. PREDNISONE TAB [Concomitant]
  54. AZITHROMYCIN [Concomitant]
  55. PHENAZOPYRIDINE HCL TAB [Concomitant]
  56. TRIMETHOPRIM [Concomitant]
  57. ZOLPIDEM TARTRATE [Concomitant]
  58. NAPROXEN [Concomitant]
  59. LISINOPRIL [Concomitant]
  60. SULFAMETHOXAZOLE [Concomitant]
  61. MINOCYCLINE HCL [Concomitant]
  62. SINGULAIR [Concomitant]
  63. DOXAZOSIN MESYLATE [Concomitant]
  64. CEPHALEXIN [Concomitant]
  65. ETODOLAC [Concomitant]
  66. METRONIDAZOLE [Concomitant]
  67. RANITIDINE [Concomitant]
  68. NUBAIN [Concomitant]
     Dosage: 10MG, AS NEEDED EVERY 3 HOUR
  69. NOVOLOG [Concomitant]
     Dosage: 100U/ML BEFORE MEAL AND AT BED TIME
     Route: 058
  70. DULCOLAX [Concomitant]
     Route: 054
  71. VALIUM [Concomitant]
     Route: 048
  72. LABETALOL HCL [Concomitant]
  73. REGLAN [Concomitant]
  74. NARCAN [Concomitant]
  75. LIDOCAINE [Concomitant]
     Dosage: 50-1000 MG, AS NEEDED
  76. VESICARE [Concomitant]
  77. ESOMEPRAZOLE MAGNESIUM [Concomitant]
     Dosage: 40 MG, 1 HOUR BEFORE BREAKFAST
     Route: 048

REACTIONS (2)
  - DIABETES MELLITUS [None]
  - DIABETIC RETINOPATHY [None]
